FAERS Safety Report 7793470-2 (Version None)
Quarter: 2011Q4

REPORT INFORMATION
  Report Type: 
  Country: None (occurrence: None)
  Receive Date: 20111003
  Receipt Date: 20110921
  Transmission Date: 20120403
  Serious: No
  Sender: FDA-Public Use
  Company Number: US-B.I. PHARMACEUTICALS,INC./RIDGEFIELD-2011-BP-22670BP

PATIENT
  Sex: Male

DRUGS (4)
  1. FLECAINIDE ACETATE [Concomitant]
     Indication: ATRIAL FIBRILLATION
  2. PRADAXA [Suspect]
     Indication: ATRIAL FIBRILLATION
     Dosage: 300 MG
     Route: 048
     Dates: start: 20110830
  3. HYTRIN [Concomitant]
     Indication: PROSTATIC DISORDER
  4. HYTRIN [Concomitant]
     Indication: THROMBOCYTOPENIA

REACTIONS (1)
  - BLOOD PRESSURE INCREASED [None]
